FAERS Safety Report 4386658-4 (Version None)
Quarter: 2004Q2

REPORT INFORMATION
  Report Type: 
  Country: None (occurrence: None)
  Receive Date: 20040623
  Receipt Date: 20040527
  Transmission Date: 20050107
  Serious: Yes (Other)
  Sender: FDA-Public Use
  Company Number: 04-143

PATIENT
  Age: 75 Year
  Sex: Female

DRUGS (7)
  1. HYDRALAZINE [Suspect]
     Indication: HYPERTENSION
     Dates: end: 20040401
  2. VERAPAMIL [Concomitant]
  3. WARFARIN SODIUM [Concomitant]
  4. FLUTICASONE PROPIONATE [Concomitant]
  5. SALMETEROL XINAFOATE (ADVAIR) [Concomitant]
  6. SALBUTAMOL SULFATE (ALBUTEROL) [Concomitant]
  7. HYDRALAZINE AND ROFECOXIB (VIOXX) [Concomitant]

REACTIONS (4)
  - DYSPNOEA [None]
  - OEDEMA PERIPHERAL [None]
  - PULMONARY OEDEMA [None]
  - WEIGHT INCREASED [None]
